FAERS Safety Report 7283644-1 (Version None)
Quarter: 2011Q1

REPORT INFORMATION
  Report Type: 
  Country: None (occurrence: None)
  Receive Date: 20110209
  Receipt Date: 20110201
  Transmission Date: 20110831
  Serious: Yes (Death)
  Sender: FDA-Public Use
  Company Number: CZ-ELI_LILLY_AND_COMPANY-CZ201102000202

PATIENT
  Sex: Male

DRUGS (4)
  1. MIRTAZAPIN [Concomitant]
     Indication: BIPOLAR DISORDER
     Dosage: 45 MG, EACH EVENING
     Route: 048
     Dates: start: 20101001
  2. TRITTICO [Concomitant]
     Indication: BIPOLAR DISORDER
     Dosage: 150 MG, 2/D
     Route: 048
     Dates: start: 20101001
  3. RIVOTRIL [Concomitant]
     Indication: BIPOLAR DISORDER
     Dosage: 0.5 MG, 3/D
     Route: 048
     Dates: start: 20101001
  4. ZYPREXA [Suspect]
     Indication: BIPOLAR DISORDER
     Dosage: 10 MG, DAILY (1/D)
     Route: 048
     Dates: start: 20101222

REACTIONS (1)
  - DEATH [None]
